FAERS Safety Report 14551427 (Version 3)
Quarter: 2018Q2

REPORT INFORMATION
  Report Type: Report from Study
  Country: US (occurrence: US)
  Receive Date: 20180220
  Receipt Date: 20180503
  Transmission Date: 20180711
  Serious: Yes (Hospitalization)
  Sender: FDA-Public Use
  Company Number: US-ROCHE-2074583

PATIENT
  Age: 62 Year
  Sex: Female
  Weight: 76.27 kg

DRUGS (4)
  1. OCREVUS [Suspect]
     Active Substance: OCRELIZUMAB
     Indication: PRIMARY PROGRESSIVE MULTIPLE SCLEROSIS
     Dosage: ONGOING-NO
     Route: 042
     Dates: start: 20170606
  2. OCREVUS [Suspect]
     Active Substance: OCRELIZUMAB
     Route: 042
     Dates: start: 20171006, end: 20171006
  3. GABAPENTIN. [Concomitant]
     Active Substance: GABAPENTIN
     Dosage: 2 PILLS 4 TIMES A DAY ;ONGOING: YES
     Route: 065
  4. BACLOFEN. [Concomitant]
     Active Substance: BACLOFEN
     Dosage: ONGOING-YES
     Route: 065

REACTIONS (5)
  - Sepsis [Recovered/Resolved]
  - Infection [Not Recovered/Not Resolved]
  - Urinary tract infection [Unknown]
  - Thrombosis [Unknown]
  - Sepsis [Not Recovered/Not Resolved]

NARRATIVE: CASE EVENT DATE: 20170609
